FAERS Safety Report 9885424 (Version 2)
Quarter: 2014Q1

REPORT INFORMATION
  Report Type: Spontaneous
  Country: IN (occurrence: IN)
  Receive Date: 20140210
  Receipt Date: 20140217
  Transmission Date: 20141002
  Serious: Yes (Other)
  Sender: FDA-Public Use
  Company Number: IN-BAYER-2014-015762

PATIENT
  Age: 26 Year
  Sex: Female

DRUGS (6)
  1. CIPROFLOXACIN [Suspect]
     Indication: ENDOPHTHALMITIS
     Dosage: 750 MG, BID
     Route: 048
  2. CIPROFLOXACIN [Concomitant]
     Indication: ENDOPHTHALMITIS
     Dosage: UNK UNK, Q1HR
     Route: 047
  3. HOMATROPINE [Concomitant]
     Indication: ENDOPHTHALMITIS
  4. VANCOMYCIN [Concomitant]
     Indication: ENDOPHTHALMITIS
     Dosage: 1 MG, ONCE
     Route: 031
  5. CEFTAZIDIME [Concomitant]
     Indication: ENDOPHTHALMITIS
     Dosage: 2.25 MG, ONCE
     Route: 031
  6. PREDNISOLONE [Concomitant]
     Indication: ENDOPHTHALMITIS
     Dosage: UNK, Q2HR
     Route: 047

REACTIONS (3)
  - Exposure during pregnancy [None]
  - Retinal detachment [None]
  - Choroidal detachment [None]
